FAERS Safety Report 14833081 (Version 2)
Quarter: 2019Q2

REPORT INFORMATION
  Report Type: Spontaneous
  Country: US (occurrence: US)
  Receive Date: 20180501
  Receipt Date: 20190422
  Transmission Date: 20190711
  Serious: Yes (Other)
  Sender: FDA-Public Use
  Company Number: US-ASTRAZENECA-2018SE50623

PATIENT
  Age: 26677 Day
  Sex: Male

DRUGS (49)
  1. NEXIUM 24HR [Suspect]
     Active Substance: ESOMEPRAZOLE MAGNESIUM
     Route: 048
     Dates: start: 2002, end: 2015
  2. CARVEDILOL. [Concomitant]
     Active Substance: CARVEDILOL
  3. MELOXICAM. [Concomitant]
     Active Substance: MELOXICAM
  4. NEXIUM [Suspect]
     Active Substance: ESOMEPRAZOLE MAGNESIUM
     Route: 048
     Dates: start: 2002, end: 2015
  5. CARDURA [Concomitant]
     Active Substance: DOXAZOSIN MESYLATE
  6. MAG-OX [Concomitant]
     Active Substance: MAGNESIUM OXIDE
  7. DOXAZOSIN [Concomitant]
     Active Substance: DOXAZOSIN\DOXAZOSIN MESYLATE
  8. TRAMADOL. [Concomitant]
     Active Substance: TRAMADOL
  9. VIMOVO [Suspect]
     Active Substance: ESOMEPRAZOLE MAGNESIUM\NAPROXEN
     Route: 048
     Dates: start: 2002, end: 2015
  10. DEXILANT [Suspect]
     Active Substance: DEXLANSOPRAZOLE
     Route: 065
     Dates: start: 2002, end: 2015
  11. COREG [Concomitant]
     Active Substance: CARVEDILOL
  12. LASIX [Concomitant]
     Active Substance: FUROSEMIDE
  13. TRAMADOL. [Concomitant]
     Active Substance: TRAMADOL
  14. TAMSULOSIN [Concomitant]
     Active Substance: TAMSULOSIN
  15. NAPROXEN. [Concomitant]
     Active Substance: NAPROXEN
  16. SUCRALFATE. [Concomitant]
     Active Substance: SUCRALFATE
  17. PROTONIX [Suspect]
     Active Substance: PANTOPRAZOLE SODIUM
     Route: 065
     Dates: start: 2002, end: 2015
  18. ASPIRIN. [Concomitant]
     Active Substance: ASPIRIN
  19. SIMVASTATIN. [Concomitant]
     Active Substance: SIMVASTATIN
  20. DICLOFENAC [Concomitant]
     Active Substance: DICLOFENAC
  21. DIGOXIN. [Concomitant]
     Active Substance: DIGOXIN
  22. CYCLOBENZAPRINE. [Concomitant]
     Active Substance: CYCLOBENZAPRINE
  23. NEXIUM [Suspect]
     Active Substance: ESOMEPRAZOLE MAGNESIUM
     Route: 065
     Dates: start: 20030822, end: 20160210
  24. PREVACID [Suspect]
     Active Substance: LANSOPRAZOLE
     Route: 065
     Dates: start: 2002, end: 2015
  25. PREVACID 24 HR [Suspect]
     Active Substance: LANSOPRAZOLE
     Route: 065
     Dates: start: 2002, end: 2015
  26. PROTONIX [Suspect]
     Active Substance: PANTOPRAZOLE SODIUM
     Route: 065
     Dates: start: 2003, end: 2016
  27. PROTONIX [Suspect]
     Active Substance: PANTOPRAZOLE SODIUM
     Route: 065
     Dates: start: 20050208, end: 20071002
  28. SUCRALFATE. [Concomitant]
     Active Substance: SUCRALFATE
  29. METFORMIN [Concomitant]
     Active Substance: METFORMIN HYDROCHLORIDE
  30. CARVEDILOL. [Concomitant]
     Active Substance: CARVEDILOL
  31. PROTONIX [Suspect]
     Active Substance: PANTOPRAZOLE SODIUM
     Route: 065
     Dates: start: 20070629
  32. MULTIVITAMIN [Concomitant]
     Active Substance: VITAMINS
  33. NOVOLIN [Concomitant]
     Active Substance: INSULIN HUMAN
  34. PALGIC [Concomitant]
     Active Substance: CARBINOXAMINE MALEATE
  35. TRAMADOL. [Concomitant]
     Active Substance: TRAMADOL
  36. LOSARTAN. [Concomitant]
     Active Substance: LOSARTAN
  37. MAGNESIUM OXIDE. [Concomitant]
     Active Substance: MAGNESIUM OXIDE
  38. NEXIUM [Suspect]
     Active Substance: ESOMEPRAZOLE MAGNESIUM
     Route: 048
     Dates: start: 2003, end: 2016
  39. SIMVASTATIN. [Concomitant]
     Active Substance: SIMVASTATIN
  40. LISINOPRIL. [Concomitant]
     Active Substance: LISINOPRIL
  41. PREDNISONE. [Concomitant]
     Active Substance: PREDNISONE
  42. PRILOSEC [Suspect]
     Active Substance: OMEPRAZOLE MAGNESIUM
     Route: 048
     Dates: start: 2002, end: 2015
  43. PRILOSEC OTC [Suspect]
     Active Substance: OMEPRAZOLE MAGNESIUM
     Route: 048
     Dates: start: 2002, end: 2015
  44. ACIPHEX [Suspect]
     Active Substance: RABEPRAZOLE SODIUM
     Route: 065
     Dates: start: 2002, end: 2015
  45. CYCLOBENZAPRINE. [Concomitant]
     Active Substance: CYCLOBENZAPRINE
  46. DIGOXIN. [Concomitant]
     Active Substance: DIGOXIN
  47. AMLODIPINE BESYLATE. [Concomitant]
     Active Substance: AMLODIPINE BESYLATE
  48. TUMS [Concomitant]
     Active Substance: CALCIUM CARBONATE
  49. FUROSEMIDE. [Concomitant]
     Active Substance: FUROSEMIDE

REACTIONS (4)
  - Renal failure [Not Recovered/Not Resolved]
  - End stage renal disease [Unknown]
  - Chronic kidney disease [Not Recovered/Not Resolved]
  - Nephrogenic anaemia [Unknown]

NARRATIVE: CASE EVENT DATE: 20111215
